FAERS Safety Report 7757282-8 (Version None)
Quarter: 2011Q3

REPORT INFORMATION
  Report Type: 
  Country: None (occurrence: None)
  Receive Date: 20110916
  Receipt Date: 20110902
  Transmission Date: 20111222
  Serious: Yes (Hospitalization)
  Sender: FDA-Public Use
  Company Number: US-PURDUE-USA-2011-0073866

PATIENT
  Sex: Female

DRUGS (1)
  1. BUTRANS [Suspect]
     Indication: BACK PAIN
     Dosage: 20 MCG/HR, UNK
     Route: 062
     Dates: start: 20110601

REACTIONS (7)
  - HYPONATRAEMIA [None]
  - WATER INTOXICATION [None]
  - INADEQUATE ANALGESIA [None]
  - PRURITUS [None]
  - PRODUCT QUALITY ISSUE [None]
  - PRODUCT ADHESION ISSUE [None]
  - HYPERSENSITIVITY [None]
